FAERS Safety Report 20751880 (Version 1)
Quarter: 2022Q2

REPORT INFORMATION
  Report Type: Spontaneous
  Country: US (occurrence: US)
  Receive Date: 20220426
  Receipt Date: 20220426
  Transmission Date: 20220721
  Serious: No
  Sender: FDA-Public Use
  Company Number: US-PFIZER INC-202101127625

PATIENT
  Age: 53 Year
  Sex: Male

DRUGS (4)
  1. LORBRENA [Suspect]
     Active Substance: LORLATINIB
     Indication: Lung neoplasm malignant
     Dosage: 2 DF, DAILY (FOR 14 DAYS)
  2. LORBRENA [Suspect]
     Active Substance: LORLATINIB
     Dosage: 3 DF, DAILY (FOR 14 DAYS)
  3. LORBRENA [Suspect]
     Active Substance: LORLATINIB
     Dosage: 4 DF, DAILY (FOR 4 WEEKS)
  4. LORBRENA [Suspect]
     Active Substance: LORLATINIB
     Dosage: 25 MG

REACTIONS (1)
  - Dyspnoea [Unknown]
